FAERS Safety Report 9699842 (Version 2)
Quarter: 2013Q4

REPORT INFORMATION
  Report Type: Report from Study
  Country: TR (occurrence: TR)
  Receive Date: 20131120
  Receipt Date: 20131120
  Transmission Date: 20140711
  Serious: Yes (Death, Other)
  Sender: FDA-Public Use
  Company Number: TR-ROCHE-1300704

PATIENT
  Sex: Male

DRUGS (3)
  1. ALTEPLASE [Suspect]
     Indication: PERIPHERAL ARTERY THROMBOSIS
     Dosage: 0.2 MG/KG/H FOR 6 HOURS
     Route: 042
  2. UNFRACTIONATED HEPARIN [Suspect]
     Indication: PERIPHERAL ARTERY THROMBOSIS
     Dosage: 75 UNITS/KG FOR 2 DAYS
     Route: 065
  3. UNFRACTIONATED HEPARIN [Suspect]
     Dosage: 28 UNITS/KG/HOUR
     Route: 065

REACTIONS (4)
  - Multi-organ disorder [Fatal]
  - Gastrointestinal haemorrhage [Unknown]
  - Skin haemorrhage [Unknown]
  - Hypotension [Unknown]
